FAERS Safety Report 5566525-0 (Version None)
Quarter: 2007Q4

REPORT INFORMATION
  Report Type: 
  Country: None (occurrence: None)
  Receive Date: 20071219
  Receipt Date: 20071213
  Transmission Date: 20080405
  Serious: Yes (Hospitalization)
  Sender: FDA-Public Use
  Company Number: US-JNJFOC-20061004097

PATIENT
  Age: 84 Year
  Sex: Female

DRUGS (5)
  1. ACETAMINOPHEN [Suspect]
  2. ACETAMINOPHEN [Suspect]
     Indication: PAIN
  3. ASPIRIN [Concomitant]
     Indication: CORONARY ARTERY DISEASE
  4. OLANZAPINE [Concomitant]
     Indication: SCHIZOPHRENIA
  5. METOPROLOL SUCCINATE [Concomitant]
     Indication: CORONARY ARTERY DISEASE

REACTIONS (2)
  - BLOOD CREATININE INCREASED [None]
  - HEPATIC FAILURE [None]
